FAERS Safety Report 20115402 (Version 1)
Quarter: 2021Q4

REPORT INFORMATION
  Report Type: Spontaneous
  Country: GB (occurrence: GB)
  Receive Date: 20211126
  Receipt Date: 20211126
  Transmission Date: 20220303
  Serious: Yes (Other)
  Sender: FDA-Public Use
  Company Number: GB-BoehringerIngelheim-2021-BI-139341

PATIENT
  Age: 65 Year
  Sex: Male

DRUGS (3)
  1. JARDIANCE [Suspect]
     Active Substance: EMPAGLIFLOZIN
     Indication: Product used for unknown indication
  2. TRULICITY [Concomitant]
     Active Substance: DULAGLUTIDE
     Indication: Product used for unknown indication
     Dates: start: 201908
  3. METFORMIN [Concomitant]
     Active Substance: METFORMIN HYDROCHLORIDE
     Indication: Product used for unknown indication

REACTIONS (4)
  - Swelling [Recovering/Resolving]
  - Thyroid mass [Recovering/Resolving]
  - Thyroid C-cell hyperplasia [Recovering/Resolving]
  - Thyroid neoplasm [Recovering/Resolving]

NARRATIVE: CASE EVENT DATE: 20200201
